FAERS Safety Report 7068996 (Version 2)
Quarter: 2014Q2

REPORT INFORMATION
  Report Type: Spontaneous
  Country: US (occurrence: None)
  Receive Date: 20090724
  Receipt Date: 20140509
  Transmission Date: 20141212
  Serious: Yes (Hospitalization, Other)
  Sender: FDA-Public Use
  Company Number: 2009S1005521

PATIENT
  Sex: Male

DRUGS (4)
  1. SODIUM PHOSPHATE [Suspect]
     Indication: COLONOSCOPY
     Route: 048
     Dates: start: 20070611, end: 20070611
  2. SPIRIVA [Concomitant]
  3. METOLAZONE (METOLAZONE) [Concomitant]
  4. ATROVENT (IPRATROPIUM) [Concomitant]

REACTIONS (24)
  - Renal failure acute [None]
  - Hepatic steatosis [None]
  - Cholelithiasis [None]
  - Diarrhoea [None]
  - Abdominal pain [None]
  - Fatigue [None]
  - Dyspnoea [None]
  - Nausea [None]
  - Vomiting [None]
  - Hypotension [None]
  - Haemodynamic instability [None]
  - Hyperkalaemia [None]
  - Haemorrhage [None]
  - Haemoglobin decreased [None]
  - Haematocrit decreased [None]
  - Gouty arthritis [None]
  - Metabolic syndrome [None]
  - Proctalgia [None]
  - Prostatomegaly [None]
  - Cellulitis [None]
  - Obstructive airways disorder [None]
  - Sciatica [None]
  - Type 2 diabetes mellitus [None]
  - Disease recurrence [None]
